FAERS Safety Report 6439591-8 (Version None)
Quarter: 2009Q4

REPORT INFORMATION
  Report Type: 
  Country: None (occurrence: None)
  Receive Date: 20091113
  Receipt Date: 20091104
  Transmission Date: 20100525
  Serious: Yes (Hospitalization)
  Sender: FDA-Public Use
  Company Number: B0601798A

PATIENT
  Age: 74 Year
  Sex: Male
  Weight: 62 kg

DRUGS (12)
  1. ARIXTRA [Suspect]
     Indication: PULMONARY EMBOLISM
     Dosage: 7.5MG PER DAY
     Route: 058
     Dates: start: 20090731, end: 20090804
  2. KARDEGIC [Suspect]
     Indication: PULMONARY EMBOLISM
     Dosage: 75MG PER DAY
     Route: 048
     Dates: start: 20090731
  3. PREVISCAN [Suspect]
     Indication: PULMONARY EMBOLISM
     Dosage: 25MG PER DAY
     Route: 048
     Dates: start: 20090731, end: 20090806
  4. TAZOCILLINE [Concomitant]
     Indication: ENTEROCOCCAL INFECTION
     Route: 065
  5. TAVANIC [Concomitant]
     Indication: ENTEROCOCCAL INFECTION
     Route: 065
  6. IMUREL [Concomitant]
     Indication: DRUG USE FOR UNKNOWN INDICATION
     Dosage: 50MG PER DAY
     Route: 065
  7. ZANIDIP [Concomitant]
     Indication: DRUG USE FOR UNKNOWN INDICATION
     Dosage: 20MG PER DAY
     Route: 065
  8. NEBIVOLOL [Concomitant]
     Indication: DRUG USE FOR UNKNOWN INDICATION
     Dosage: 10MG PER DAY
     Route: 065
  9. TAHOR [Concomitant]
     Indication: DRUG USE FOR UNKNOWN INDICATION
     Dosage: 10MG PER DAY
     Route: 065
  10. SOLUPRED [Concomitant]
     Indication: DRUG USE FOR UNKNOWN INDICATION
     Dosage: 5MG PER DAY
     Route: 065
  11. VALSARTAN AND HYDROCHLOROTHIAZIDE [Concomitant]
     Indication: DRUG USE FOR UNKNOWN INDICATION
     Route: 065
  12. AMOXICILLIN [Concomitant]
     Indication: DRUG USE FOR UNKNOWN INDICATION
     Dosage: 1G THREE TIMES PER DAY
     Route: 065

REACTIONS (2)
  - DRUG INTERACTION [None]
  - HAEMATOMA [None]
